FAERS Safety Report 7520826-5 (Version None)
Quarter: 2011Q2

REPORT INFORMATION
  Report Type: 
  Country: None (occurrence: None)
  Receive Date: 20110603
  Receipt Date: 20101124
  Transmission Date: 20111010
  Serious: Yes (Hospitalization, Other)
  Sender: FDA-Public Use
  Company Number: US-BAYER-200942169NA

PATIENT
  Age: 24 Year
  Sex: Female
  Weight: 45.455 kg

DRUGS (8)
  1. NSAID'S [Concomitant]
  2. ANTIBIOTICS [Concomitant]
     Dates: start: 20060101
  3. ANTIBIOTICS [Concomitant]
     Dates: start: 20080101
  4. YASMIN [Suspect]
     Indication: ORAL CONTRACEPTION
     Dosage: UNK UNK, QD
     Route: 048
     Dates: start: 20040101, end: 20071230
  5. NUVARING [Concomitant]
     Dates: start: 20080101
  6. AMOXICILLIN [Concomitant]
     Dates: start: 20070901
  7. ACETAMINOPHEN W/ CODEINE [Concomitant]
     Dosage: UNK
     Dates: start: 20070901
  8. YASMIN [Suspect]
     Route: 048
     Dates: start: 20080201, end: 20090401

REACTIONS (6)
  - DIARRHOEA [None]
  - NAUSEA [None]
  - CHOLECYSTITIS CHRONIC [None]
  - CHOLELITHIASIS [None]
  - DYSPEPSIA [None]
  - ABDOMINAL PAIN [None]
